FAERS Safety Report 9139328 (Version 1)
Quarter: 2013Q1

REPORT INFORMATION
  Report Type: Spontaneous
  Country: US (occurrence: US)
  Receive Date: 20130305
  Receipt Date: 20130305
  Transmission Date: 20140127
  Serious: No
  Sender: FDA-Public Use
  Company Number: US-ENDO PHARMACEUTICALS INC.-SPLN20110001

PATIENT
  Sex: Male
  Weight: 27.24 kg

DRUGS (1)
  1. SUPPRELIN LA [Suspect]
     Indication: PRODUCT USED FOR UNKNOWN INDICATION
     Route: 058
     Dates: start: 20100624

REACTIONS (3)
  - Blood testosterone increased [Not Recovered/Not Resolved]
  - Blood gonadotrophin increased [Not Recovered/Not Resolved]
  - Drug ineffective [Not Recovered/Not Resolved]
